FAERS Safety Report 4342346-1 (Version None)
Quarter: 2004Q2

REPORT INFORMATION
  Report Type: 
  Country: None (occurrence: None)
  Receive Date: 20040416
  Receipt Date: 20040402
  Transmission Date: 20050107
  Serious: Yes (Hospitalization)
  Sender: FDA-Public Use
  Company Number: USA-2004-0014283

PATIENT
  Age: 80 Year
  Sex: Male

DRUGS (1)
  1. SPECTRACEF [Suspect]
     Dosage: 400 MG, Q12H

REACTIONS (2)
  - CLOSTRIDIUM COLITIS [None]
  - DEHYDRATION [None]
